FAERS Safety Report 6839427-7 (Version None)
Quarter: 2010Q3

REPORT INFORMATION
  Report Type: 
  Country: None (occurrence: None)
  Receive Date: 20100714
  Receipt Date: 20100706
  Transmission Date: 20110219
  Serious: Yes (Other)
  Sender: FDA-Public Use
  Company Number: AU-ASTRAZENECA-2010SE24946

PATIENT
  Sex: Male
  Weight: 89 kg

DRUGS (5)
  1. NEXIUM [Suspect]
     Route: 048
     Dates: start: 20020201
  2. LYRICA [Concomitant]
     Dosage: TWICE DAILY
     Dates: start: 20060101
  3. TRAMOR [Concomitant]
     Dosage: TWICE DAILY
     Dates: start: 20060101
  4. PANADINE FORTE [Concomitant]
     Dosage: WHEN REQUIRED
     Dates: start: 19980101
  5. SULMLEATE [Concomitant]
     Dates: start: 20020101, end: 20070101

REACTIONS (1)
  - THORACIC VERTEBRAL FRACTURE [None]
